FAERS Safety Report 6866148-7 (Version None)
Quarter: 2010Q3

REPORT INFORMATION
  Report Type: 
  Country: None (occurrence: None)
  Receive Date: 20100722
  Receipt Date: 20100719
  Transmission Date: 20110219
  Serious: Yes (Hospitalization)
  Sender: FDA-Public Use
  Company Number: US-ELI_LILLY_AND_COMPANY-US200905004359

PATIENT
  Sex: Female
  Weight: 104.31 kg

DRUGS (6)
  1. BYETTA [Suspect]
     Dosage: UNK, UNKNOWN
     Route: 065
     Dates: start: 20070101, end: 20080101
  2. ACTOS [Concomitant]
     Indication: DIABETES MELLITUS
     Dates: start: 20070401, end: 20080101
  3. NEXIUM [Concomitant]
     Indication: GASTROOESOPHAGEAL REFLUX DISEASE
     Dates: start: 20040101, end: 20080101
  4. FLUCONAZOLE [Concomitant]
     Indication: FUNGAL INFECTION
     Dates: start: 20080111, end: 20080121
  5. AZITHROMYCIN [Concomitant]
     Indication: INFECTION
     Dates: start: 20080118
  6. GLIPIZIDE [Concomitant]
     Dosage: UNK, 2/D

REACTIONS (6)
  - BLOOD GLUCOSE INCREASED [None]
  - CARBOHYDRATE ANTIGEN 19-9 INCREASED [None]
  - OFF LABEL USE [None]
  - PANCREATITIS ACUTE [None]
  - PANCREATITIS RELAPSING [None]
  - WEIGHT DECREASED [None]
